FAERS Safety Report 10188545 (Version 2)
Quarter: 2016Q2

REPORT INFORMATION
  Report Type: Spontaneous
  Country: US (occurrence: US)
  Receive Date: 20140522
  Receipt Date: 20160524
  Transmission Date: 20160815
  Serious: No
  Sender: FDA-Public Use
  Company Number: US-SA-2014SA014548

PATIENT
  Age: 70 Year
  Sex: Female

DRUGS (9)
  1. NOVOLOG [Suspect]
     Active Substance: INSULIN ASPART
     Route: 065
  2. SOLOSTAR [Suspect]
     Active Substance: DEVICE
     Indication: TYPE 2 DIABETES MELLITUS
     Dates: start: 2010
  3. SOLOSTAR [Suspect]
     Active Substance: DEVICE
     Indication: TYPE 2 DIABETES MELLITUS
  4. SOLOSTAR [Suspect]
     Active Substance: DEVICE
     Indication: TYPE 2 DIABETES MELLITUS
  5. LANTUS SOLOSTAR [Suspect]
     Active Substance: INSULIN GLARGINE
     Indication: TYPE 2 DIABETES MELLITUS
     Dosage: DOSE: 17 UNITS IN THE MORNING AND 15 UNITS AT NIGHT
     Route: 051
     Dates: start: 2010
  6. LANTUS SOLOSTAR [Suspect]
     Active Substance: INSULIN GLARGINE
     Indication: TYPE 2 DIABETES MELLITUS
     Dosage: DOSE: 17 UNITS IN THE MORNING AND 15 UNITS AT NIGHT
     Route: 051
     Dates: start: 2010
  7. SOLOSTAR [Suspect]
     Active Substance: DEVICE
     Indication: TYPE 2 DIABETES MELLITUS
     Dates: start: 2010
  8. LANTUS SOLOSTAR [Suspect]
     Active Substance: INSULIN GLARGINE
     Indication: TYPE 2 DIABETES MELLITUS
     Dosage: TAKEN FROM: MORE THAN 4 YEARS. DOSE:30 UNIT(S)
     Route: 051
  9. LANTUS SOLOSTAR [Suspect]
     Active Substance: INSULIN GLARGINE
     Indication: TYPE 2 DIABETES MELLITUS
     Dosage: TAKEN FROM: MORE THAN 4 YEARS. DOSE:30 UNIT(S)
     Route: 051

REACTIONS (4)
  - Hyperglycaemia [Unknown]
  - Injection site haemorrhage [Recovered/Resolved]
  - Feeling abnormal [Unknown]
  - Drug administration error [Unknown]
